FAERS Safety Report 8757304 (Version 1)
Quarter: 2012Q4

REPORT INFORMATION
  Report Type: 
  Country: GB (occurrence: GB)
  Receive Date: 20120828
  Receipt Date: 20120828
  Transmission Date: 20130627
  Serious: Yes (Other)
  Sender: FDA-Public Use
  Company Number: GB-MERCK-1208GBR008945

PATIENT

DRUGS (3)
  1. ZOCOR [Suspect]
     Indication: HYPERCHOLESTEROLAEMIA
     Dosage: 40 mg, qd
     Route: 048
     Dates: start: 20050323
  2. AMLODIPINE [Concomitant]
     Indication: HYPERTENSION
     Dosage: 5 mg, qd
     Route: 048
     Dates: start: 20091215
  3. RAMIPRIL [Concomitant]
     Indication: HYPERTENSION
     Dosage: 10 mg, qd
     Route: 048
     Dates: start: 20070131

REACTIONS (1)
  - Cataract [Unknown]
